FAERS Safety Report 8493077-8 (Version None)
Quarter: 2012Q3

REPORT INFORMATION
  Report Type: 
  Country: None (occurrence: None)
  Receive Date: 20120706
  Receipt Date: 20120626
  Transmission Date: 20120928
  Serious: Yes (Hospitalization)
  Sender: FDA-Public Use
  Company Number: GB-CELGENEUS-167-20785-12050275

PATIENT
  Age: 60 Year
  Sex: Male

DRUGS (6)
  1. THALIDOMIDE [Suspect]
     Dosage: 50 MILLIGRAM
     Route: 048
     Dates: start: 20120501
  2. DEXAMETHASONE SODIUM PHOSPHATE [Suspect]
     Indication: MULTIPLE MYELOMA
     Route: 048
     Dates: start: 20120423
  3. CYCLOPHOSPHAMIDE [Suspect]
     Indication: MULTIPLE MYELOMA
     Route: 048
     Dates: start: 20120423
  4. ONDANSETRON [Concomitant]
     Route: 065
  5. MORPHINE [Concomitant]
     Route: 065
  6. THALIDOMIDE [Suspect]
     Indication: MULTIPLE MYELOMA
     Dosage: 100 MILLIGRAM
     Route: 048
     Dates: start: 20120423

REACTIONS (3)
  - GLUCOCORTICOID DEFICIENCY [None]
  - CONSTIPATION [None]
  - ANAEMIA [None]
